FAERS Safety Report 21399841 (Version 4)
Quarter: 2024Q1

REPORT INFORMATION
  Report Type: Report from Study
  Country: MY (occurrence: MY)
  Receive Date: 20221002
  Receipt Date: 20240229
  Transmission Date: 20240410
  Serious: Yes (Hospitalization, Other)
  Sender: FDA-Public Use
  Company Number: MY-NOVARTISPH-NVSC2022MY219739

PATIENT
  Sex: Female

DRUGS (2)
  1. MEKINIST [Suspect]
     Active Substance: TRAMETINIB DIMETHYL SULFOXIDE
     Indication: Metastatic malignant melanoma
     Dosage: 2 MG, QD
     Route: 048
  2. TAFINLAR [Suspect]
     Active Substance: DABRAFENIB MESYLATE
     Indication: Metastatic malignant melanoma
     Dosage: 75 MG, BID (2 CAPSULE BD)
     Route: 048

REACTIONS (4)
  - General physical health deterioration [Unknown]
  - Thrombosis [Unknown]
  - Rash [Unknown]
  - Diarrhoea [Recovered/Resolved]
